FAERS Safety Report 5312430-4 (Version None)
Quarter: 2007Q2

REPORT INFORMATION
  Report Type: 
  Country: None (occurrence: None)
  Receive Date: 20070430
  Receipt Date: 20070417
  Transmission Date: 20071010
  Serious: Yes (Other)
  Sender: FDA-Public Use
  Company Number: US-MERCK-0606USA00339

PATIENT
  Age: 66 Year
  Sex: Female

DRUGS (13)
  1. FOSAMAX [Suspect]
     Indication: OSTEOPOROSIS
     Route: 048
     Dates: start: 19970101, end: 20020101
  2. FOSAMAX [Suspect]
     Route: 048
     Dates: start: 20020101, end: 20020101
  3. IMURAN [Concomitant]
     Indication: ARTHRITIS
     Route: 065
  4. MELLARIL [Concomitant]
     Indication: ANXIETY
     Route: 065
  5. PAMELOR [Concomitant]
     Indication: ANTIDEPRESSANT THERAPY
     Route: 065
  6. PLAQUENIL [Concomitant]
     Indication: ARTHRITIS
     Route: 065
  7. PREDNISONE [Concomitant]
     Indication: ARTHRITIS
     Route: 065
  8. PREVACID [Concomitant]
     Indication: GASTRIC DISORDER
     Route: 065
  9. SLOW-MAG [Concomitant]
     Indication: ROUTINE HEALTH MAINTENANCE
     Route: 065
  10. RESTORIL [Concomitant]
     Indication: SLEEP DISORDER
     Route: 065
  11. VICODIN [Concomitant]
     Indication: PAIN
     Route: 065
  12. ZYPREXA [Concomitant]
     Indication: MENTAL DISORDER
     Route: 065
  13. ZOLOFT [Concomitant]
     Indication: ANTIDEPRESSANT THERAPY
     Route: 065

REACTIONS (7)
  - ANXIETY [None]
  - ARTHROPATHY [None]
  - DEPRESSION [None]
  - HEART RATE IRREGULAR [None]
  - NERVOUSNESS [None]
  - OSTEOMYELITIS [None]
  - OSTEONECROSIS [None]
